FAERS Safety Report 19968971 (Version 1)
Quarter: 2021Q4

REPORT INFORMATION
  Report Type: Spontaneous
  Country: US (occurrence: US)
  Receive Date: 20211019
  Receipt Date: 20211019
  Transmission Date: 20220303
  Serious: No
  Sender: FDA-Public Use
  Company Number: US-PFIZER INC-202101000995

PATIENT
  Age: 30 Year
  Sex: Male
  Weight: 150 kg

DRUGS (1)
  1. CHANTIX [Suspect]
     Active Substance: VARENICLINE TARTRATE
     Indication: Smoking cessation therapy
     Dosage: UNK
     Dates: start: 2014, end: 2014

REACTIONS (5)
  - Anger [Unknown]
  - Nightmare [Unknown]
  - Anxiety [Unknown]
  - Depression [Unknown]
  - Hostility [Unknown]

NARRATIVE: CASE EVENT DATE: 20140101
